FAERS Safety Report 5120021-3 (Version None)
Quarter: 2006Q3

REPORT INFORMATION
  Report Type: 
  Country: None (occurrence: None)
  Receive Date: 20060929
  Receipt Date: 20060920
  Transmission Date: 20061208
  Serious: Yes (Hospitalization, Other)
  Sender: FDA-Public Use
  Company Number: L06-DEN-03765-01

PATIENT
  Age: 79 Year
  Sex: Female

DRUGS (3)
  1. CARBAMAZEPINE [Suspect]
     Indication: TRIGEMINAL NEURALGIA
     Dosage: 700 MG QD
  2. CARBAMAZEPINE [Suspect]
     Indication: TRIGEMINAL NEURALGIA
     Dosage: 900 MG QD
  3. CARBAMAZEPINE [Suspect]
     Indication: TRIGEMINAL NEURALGIA

REACTIONS (4)
  - ANTICONVULSANT DRUG LEVEL ABOVE THERAPEUTIC [None]
  - ATRIOVENTRICULAR BLOCK THIRD DEGREE [None]
  - LOSS OF CONSCIOUSNESS [None]
  - SYNCOPE [None]
